FAERS Safety Report 16756052 (Version 4)
Quarter: 2020Q1

REPORT INFORMATION
  Report Type: Report from Study
  Country: US (occurrence: US)
  Receive Date: 20190829
  Receipt Date: 20200109
  Transmission Date: 20200409
  Serious: Yes (Hospitalization, Other)
  Sender: FDA-Public Use
  Company Number: US-ASTELLAS-2019US009271

PATIENT
  Sex: Male

DRUGS (1)
  1. ISAVUCONAZOLE [Suspect]
     Active Substance: ISAVUCONAZOLE
     Indication: ASPERGILLUS INFECTION
     Dosage: 372 MG, ONCE DAILY (2X186 MG)
     Route: 048
     Dates: start: 20190116

REACTIONS (5)
  - Arthralgia [Not Recovered/Not Resolved]
  - Pneumonia [Not Recovered/Not Resolved]
  - Blood iron decreased [Unknown]
  - Product availability issue [Unknown]
  - Therapy cessation [Unknown]
